FAERS Safety Report 5008824-7 (Version None)
Quarter: 2006Q2

REPORT INFORMATION
  Report Type: 
  Country: None (occurrence: None)
  Receive Date: 20060518
  Receipt Date: 20060501
  Transmission Date: 20061013
  Serious: No
  Sender: FDA-Public Use
  Company Number: USA050291631

PATIENT
  Age: 18 Year
  Sex: Female
  Weight: 80.5 kg

DRUGS (3)
  1. STRATTERA [Suspect]
     Indication: ATTENTION DEFICIT/HYPERACTIVITY DISORDER
     Dosage: 120 MG, DAILY (1/D), ORAL
     Route: 048
     Dates: start: 20040901, end: 20050101
  2. ALLEGRA [Concomitant]
  3. ORTHO TRI-CYCLEN [Concomitant]

REACTIONS (17)
  - ABDOMINAL PAIN [None]
  - ALANINE AMINOTRANSFERASE INCREASED [None]
  - ASPARTATE AMINOTRANSFERASE INCREASED [None]
  - DEPRESSION [None]
  - DISEASE RECURRENCE [None]
  - FATIGUE [None]
  - HEADACHE [None]
  - MALAISE [None]
  - MIGRAINE [None]
  - MONONUCLEOSIS SYNDROME [None]
  - PHARYNGITIS STREPTOCOCCAL [None]
  - PLATELET COUNT DECREASED [None]
  - PRESCRIBED OVERDOSE [None]
  - RED BLOOD CELL COUNT INCREASED [None]
  - TONSILLITIS [None]
  - WEIGHT DECREASED [None]
  - WHITE BLOOD CELL COUNT DECREASED [None]
